FAERS Safety Report 18331075 (Version 1)
Quarter: 2020Q3

REPORT INFORMATION
  Report Type: Spontaneous
  Country: US (occurrence: US)
  Receive Date: 20200930
  Receipt Date: 20200930
  Transmission Date: 20201103
  Serious: Yes (Hospitalization, Other)
  Sender: FDA-Public Use
  Company Number: US-VERTEX PHARMACEUTICALS-2020-018848

PATIENT
  Sex: Male
  Weight: 50 kg

DRUGS (1)
  1. TRIKAFTA [Suspect]
     Active Substance: ELEXACAFTOR\IVACAFTOR\TEZACAFTOR
     Indication: CYSTIC FIBROSIS
     Dosage: 2 ORANGE TAB (100MG ELEXA/50MG TEZA/75MG IVA) AM AND 1 BLUE TAB (150MG IVA) PM
     Route: 048
     Dates: start: 202008, end: 2020

REACTIONS (3)
  - Hepatic enzyme increased [Unknown]
  - Liver transplant [Unknown]
  - Pneumonia [Unknown]

NARRATIVE: CASE EVENT DATE: 2020
